FAERS Safety Report 6826583-X (Version None)
Quarter: 2010Q3

REPORT INFORMATION
  Report Type: 
  Country: None (occurrence: None)
  Receive Date: 20100709
  Receipt Date: 20100624
  Transmission Date: 20110219
  Serious: Yes (Other)
  Sender: FDA-Public Use
  Company Number: GB-PFIZER INC-2010052749

PATIENT
  Age: 41 Year
  Sex: Male

DRUGS (6)
  1. LYRICA [Suspect]
     Indication: NEURALGIA
     Dosage: 300 MG, 3X/DAY
     Route: 048
     Dates: start: 20070101
  2. LYRICA [Suspect]
     Indication: RESTLESS LEGS SYNDROME
  3. LYRICA [Suspect]
     Indication: PAIN
  4. LYRICA [Suspect]
  5. AMITRIPTYLINE [Concomitant]
     Indication: PAIN
     Dosage: 50 MG, 1X/DAY AT NIGHT
     Route: 048
  6. DIAZEPAM [Concomitant]

REACTIONS (1)
  - INTENTIONAL DRUG MISUSE [None]
